FAERS Safety Report 5123372-1 (Version None)
Quarter: 2006Q4

REPORT INFORMATION
  Report Type: 
  Country: None (occurrence: None)
  Receive Date: 20061005
  Receipt Date: 20060918
  Transmission Date: 20070319
  Serious: Yes (Death, Life-Threatening, Hospitalization, Other)
  Sender: FDA-Public Use
  Company Number: 29643

PATIENT
  Age: 24 Year
  Sex: Female

DRUGS (2)
  1. FLECAINIDE ACETATE [Suspect]
     Indication: SUICIDE ATTEMPT
     Dosage: 6 GM (6 GM, ONCE) ORAL
     Route: 048
     Dates: start: 20060726, end: 20060726
  2. SEROPLEX (ESCITALOPRAM) [Suspect]
     Indication: SUICIDE ATTEMPT
     Dosage: 1 IN 1 DAY(S) ORAL
     Route: 048
     Dates: start: 20060726, end: 20060726

REACTIONS (25)
  - ARRHYTHMIA [None]
  - ATRIOVENTRICULAR BLOCK THIRD DEGREE [None]
  - BLOOD CREATINE PHOSPHOKINASE INCREASED [None]
  - BLOOD POTASSIUM DECREASED [None]
  - BLOOD PRESSURE DECREASED [None]
  - BLOOD SODIUM INCREASED [None]
  - BODY TEMPERATURE INCREASED [None]
  - BUNDLE BRANCH BLOCK RIGHT [None]
  - C-REACTIVE PROTEIN INCREASED [None]
  - CARDIOGENIC SHOCK [None]
  - DRUG LEVEL ABOVE THERAPEUTIC [None]
  - ELECTROCARDIOGRAM QRS COMPLEX PROLONGED [None]
  - EXTRASYSTOLES [None]
  - GENITAL DISCHARGE [None]
  - INCORRECT DOSE ADMINISTERED [None]
  - INTENTIONAL DRUG MISUSE [None]
  - LOSS OF CONSCIOUSNESS [None]
  - MALAISE [None]
  - NAUSEA [None]
  - PHLEBECTOMY [None]
  - SUICIDE ATTEMPT [None]
  - TENDON RUPTURE [None]
  - VENTRICULAR TACHYCARDIA [None]
  - VERTIGO [None]
  - WHITE BLOOD CELL COUNT INCREASED [None]
